FAERS Safety Report 6973277-6 (Version None)
Quarter: 2010Q3

REPORT INFORMATION
  Report Type: 
  Country: None (occurrence: None)
  Receive Date: 20100907
  Receipt Date: 20100902
  Transmission Date: 20110219
  Serious: Yes (Death)
  Sender: FDA-Public Use
  Company Number: 1000016074

PATIENT
  Age: 39 Year
  Sex: Male

DRUGS (4)
  1. CELEXA [Suspect]
     Indication: DEPRESSION
     Dosage: ORAL
     Route: 048
     Dates: start: 20090127, end: 20090209
  2. SEROQUEL [Concomitant]
  3. DEPAKOTE [Concomitant]
  4. VISTARIL [Concomitant]

REACTIONS (2)
  - ASPHYXIA [None]
  - COMPLETED SUICIDE [None]
